FAERS Safety Report 6793524-3 (Version None)
Quarter: 2010Q2

REPORT INFORMATION
  Report Type: 
  Country: None (occurrence: None)
  Receive Date: 20100624
  Receipt Date: 20100601
  Transmission Date: 20101027
  Serious: Yes (Life-Threatening, Other)
  Sender: FDA-Public Use
  Company Number: US-MYLANLABS-2010S1007810

PATIENT
  Age: 51 Year
  Sex: Female
  Weight: 50.8 kg

DRUGS (5)
  1. CLOZAPINE [Suspect]
     Indication: SCHIZOPHRENIA
     Route: 048
     Dates: start: 20090901, end: 20100426
  2. LITHIUM CARBONATE [Concomitant]
     Route: 048
     Dates: start: 20100428
  3. LORAZEPAM [Concomitant]
     Route: 048
     Dates: start: 20100302
  4. WELLBUTRIN XL [Concomitant]
     Route: 048
     Dates: start: 20100302
  5. ZOLOFT [Concomitant]
     Route: 048

REACTIONS (3)
  - AGRANULOCYTOSIS [None]
  - GRANULOCYTOPENIA [None]
  - LEUKOPENIA [None]
